FAERS Safety Report 10425887 (Version 1)
Quarter: 2014Q3

REPORT INFORMATION
  Report Type: Report from Study
  Country: RU (occurrence: RU)
  Receive Date: 20140903
  Receipt Date: 20140903
  Transmission Date: 20150326
  Serious: Yes (Death, Other)
  Sender: FDA-Public Use
  Company Number: RU-ROCHE-1453449

PATIENT

DRUGS (17)
  1. FLUDARABINE [Concomitant]
     Active Substance: FLUDARABINE PHOSPHATE
     Route: 065
  2. CYTOSAR [Concomitant]
     Active Substance: CYTARABINE
     Dosage: 12G/M2
     Route: 065
  3. THIOTEPA. [Concomitant]
     Active Substance: THIOTEPA
     Route: 065
  4. ALEMTUZUMAB [Concomitant]
     Active Substance: ALEMTUZUMAB
  5. METHOTREXATE [Suspect]
     Active Substance: METHOTREXATE
     Indication: PROPHYLAXIS AGAINST GRAFT VERSUS HOST DISEASE
     Route: 065
  6. TACROLIMUS. [Suspect]
     Active Substance: TACROLIMUS
     Indication: PROPHYLAXIS AGAINST GRAFT VERSUS HOST DISEASE
     Route: 065
  7. BUSULFAN [Concomitant]
     Active Substance: BUSULFAN
     Route: 065
  8. MELFALAN [Concomitant]
     Active Substance: MELPHALAN
     Route: 065
  9. CYCLOSPORIN A [Suspect]
     Active Substance: CYCLOSPORINE
     Indication: PROPHYLAXIS AGAINST GRAFT VERSUS HOST DISEASE
     Route: 065
  10. CYCLOPHOSPHAN [Concomitant]
     Active Substance: CYCLOPHOSPHAMIDE
     Route: 065
  11. FLUDARABINE [Concomitant]
     Active Substance: FLUDARABINE PHOSPHATE
     Route: 065
  12. MYCOPHENOLATE MOFETIL. [Suspect]
     Active Substance: MYCOPHENOLATE MOFETIL
     Indication: PROPHYLAXIS AGAINST GRAFT VERSUS HOST DISEASE
     Route: 065
  13. BUSULFAN [Concomitant]
     Active Substance: BUSULFAN
     Route: 065
  14. FLUDARABINE [Concomitant]
     Active Substance: FLUDARABINE PHOSPHATE
     Route: 065
  15. MELFALAN [Concomitant]
     Active Substance: MELPHALAN
     Route: 065
  16. TREOSULFAN [Concomitant]
     Active Substance: TREOSULFAN
     Dosage: 36 G/M2
     Route: 065
  17. ATG [Concomitant]
     Active Substance: LAPINE T-LYMPHOCYTE IMMUNE GLOBULIN

REACTIONS (6)
  - Pneumonia cytomegaloviral [Fatal]
  - Chronic graft versus host disease [Unknown]
  - Encephalitis cytomegalovirus [Unknown]
  - Cytomegalovirus infection [Unknown]
  - Cytomegalovirus test positive [Unknown]
  - Cytomegalovirus colitis [Unknown]
